FAERS Safety Report 5495040-8 (Version None)
Quarter: 2007Q4

REPORT INFORMATION
  Report Type: 
  Country: None (occurrence: None)
  Receive Date: 20071024
  Receipt Date: 20071010
  Transmission Date: 20080405
  Serious: Yes (Death, Other)
  Sender: FDA-Public Use
  Company Number: JP-SHR-JP-2007-039626

PATIENT
  Age: 40 Year
  Sex: Female

DRUGS (3)
  1. FLUDARA [Suspect]
     Indication: CORD BLOOD TRANSPLANT THERAPY
     Dosage: 25 UNK, UNK
  2. MELPHALAN [Concomitant]
     Indication: CORD BLOOD TRANSPLANT THERAPY
     Dosage: 80 UNK, UNK
     Route: 042
  3. TACROLIMUS [Concomitant]
     Indication: PROPHYLAXIS
     Dosage: UNK, UNK
     Route: 041

REACTIONS (6)
  - CONVULSION [None]
  - GRAFT VERSUS HOST DISEASE [None]
  - HISTIOCYTOSIS HAEMATOPHAGIC [None]
  - LIVER DISORDER [None]
  - SEPSIS [None]
  - THROMBOTIC MICROANGIOPATHY [None]
